FAERS Safety Report 7385714-6 (Version None)
Quarter: 2011Q1

REPORT INFORMATION
  Report Type: 
  Country: None (occurrence: None)
  Receive Date: 20110331
  Receipt Date: 20110318
  Transmission Date: 20110831
  Serious: Yes (Other)
  Sender: FDA-Public Use
  Company Number: US-ASTRAZENECA-2009SE09785

PATIENT
  Age: 45 Year
  Sex: Male

DRUGS (14)
  1. THORAZINE [Concomitant]
     Dates: start: 20060201
  2. CLOZARIL [Concomitant]
     Dates: start: 20060201
  3. GABAPENTIN [Concomitant]
     Dates: start: 20051031
  4. TRILITIPIX [Concomitant]
  5. SEROQUEL [Suspect]
     Indication: DEPRESSION
     Dosage: 300 MG TO 1200 MG
     Route: 048
     Dates: start: 20040101
  6. DEPAKOTE [Concomitant]
     Dates: start: 20050819
  7. ABILIFY [Concomitant]
  8. SEROQUEL [Suspect]
     Dosage: TWO AT NIGHT
     Route: 048
     Dates: start: 20050623
  9. GEODON [Concomitant]
     Dates: start: 20070201
  10. SEROQUEL [Suspect]
     Indication: BIPOLAR DISORDER
     Dosage: 300 MG TO 1200 MG
     Route: 048
     Dates: start: 20040101
  11. SEROQUEL [Suspect]
     Dosage: TWO AT NIGHT
     Route: 048
     Dates: start: 20050623
  12. CLONAZEPAM [Concomitant]
     Dates: start: 20051031
  13. TRILIPIX [Concomitant]
  14. SIMVASTATIN [Concomitant]

REACTIONS (4)
  - NEUROPATHY PERIPHERAL [None]
  - TYPE 2 DIABETES MELLITUS [None]
  - ERECTILE DYSFUNCTION [None]
  - HYPERTENSION [None]
